FAERS Safety Report 7764344-8 (Version None)
Quarter: 2011Q3

REPORT INFORMATION
  Report Type: 
  Country: None (occurrence: None)
  Receive Date: 20110921
  Receipt Date: 20110914
  Transmission Date: 20111222
  Serious: Yes (Hospitalization)
  Sender: FDA-Public Use
  Company Number: US-BRISTOL-MYERS SQUIBB COMPANY-16062390

PATIENT
  Age: 72 Year
  Sex: Female
  Weight: 81 kg

DRUGS (3)
  1. RHUMAB-VEGF [Suspect]
     Indication: ENDOMETRIAL CANCER
     Dosage: NO OF COURSES:3
     Dates: start: 20110624, end: 20110816
  2. IXEMPRA KIT [Suspect]
     Indication: ENDOMETRIAL CANCER
     Dosage: NO OF COURSES:3
     Dates: start: 20110624, end: 20110816
  3. CARBOPLATIN [Suspect]
     Indication: ENDOMETRIAL CANCER
     Dosage: NO OF COURSES:3
     Dates: start: 20110624, end: 20110816

REACTIONS (3)
  - HYPOALBUMINAEMIA [None]
  - GASTROINTESTINAL FISTULA [None]
  - HYPOCALCAEMIA [None]
